FAERS Safety Report 14638778 (Version 1)
Quarter: 2018Q1

REPORT INFORMATION
  Report Type: Spontaneous
  Country: FR (occurrence: FR)
  Receive Date: 20180315
  Receipt Date: 20180315
  Transmission Date: 20180509
  Serious: Yes (Other)
  Sender: FDA-Public Use
  Company Number: FR-MERCK KGAA-2043750

PATIENT
  Age: 27 Year
  Sex: Female

DRUGS (1)
  1. NOVOTHYROX [Suspect]
     Active Substance: LEVOTHYROXINE SODIUM
     Indication: HYPOTHYROIDISM

REACTIONS (18)
  - Dizziness [None]
  - Amnesia [None]
  - Hot flush [None]
  - Thyroxine free increased [None]
  - Emotional distress [None]
  - Depressed mood [None]
  - Abdominal pain upper [None]
  - Discomfort [None]
  - Disturbance in attention [None]
  - Loss of personal independence in daily activities [None]
  - Headache [None]
  - Weight increased [None]
  - Tremor [None]
  - Alopecia [None]
  - Impaired driving ability [None]
  - Fatigue [None]
  - Myalgia [None]
  - Asthenia [None]

NARRATIVE: CASE EVENT DATE: 201704
